FAERS Safety Report 7101750-9 (Version None)
Quarter: 2010Q4

REPORT INFORMATION
  Report Type: 
  Country: None (occurrence: None)
  Receive Date: 20101115
  Receipt Date: 20101027
  Transmission Date: 20110411
  Serious: No
  Sender: FDA-Public Use
  Company Number: US-JNJFOC-20101100377

PATIENT
  Sex: Male
  Weight: 81.65 kg

DRUGS (2)
  1. DURAGESIC-100 [Suspect]
     Indication: RHEUMATOID ARTHRITIS
     Route: 062
  2. UNKNOWN MEDICATION [Concomitant]

REACTIONS (4)
  - DRUG ADMINISTERED AT INAPPROPRIATE SITE [None]
  - OVERDOSE [None]
  - PRODUCT ADHESION ISSUE [None]
  - WRONG TECHNIQUE IN DRUG USAGE PROCESS [None]
